FAERS Safety Report 9692440 (Version 1)
Quarter: 2013Q4

REPORT INFORMATION
  Report Type: Spontaneous
  Country: US (occurrence: US)
  Receive Date: 20131118
  Receipt Date: 20131118
  Transmission Date: 20140711
  Serious: No
  Sender: FDA-Public Use
  Company Number: US-PFIZER INC-2013325994

PATIENT
  Age: 68 Year
  Sex: Male
  Weight: 72.56 kg

DRUGS (1)
  1. TOVIAZ [Suspect]
     Indication: AUTOMATIC BLADDER
     Dosage: 8 MG, 1X/DAY
     Route: 048
     Dates: start: 2009

REACTIONS (1)
  - Drug effect incomplete [Unknown]
